FAERS Safety Report 24042405 (Version 1)
Quarter: 2024Q3

REPORT INFORMATION
  Report Type: Spontaneous
  Country: US (occurrence: None)
  Receive Date: 20240701
  Receipt Date: 20240701
  Transmission Date: 20241017
  Serious: Yes (Other)
  Sender: Public
  Company Number: None

PATIENT
  Age: 75 Year
  Sex: Female

DRUGS (1)
  1. TEPEZZA [Suspect]
     Active Substance: TEPROTUMUMAB-TRBW
     Indication: Endocrine ophthalmopathy
     Dosage: 1400 MG EVERY 3 WEEKS INTRAVENOUS DRIP ?
     Route: 041
     Dates: start: 20240520

REACTIONS (2)
  - Blood pressure increased [None]
  - Hypoacusis [None]

NARRATIVE: CASE EVENT DATE: 20240520
